FAERS Safety Report 23138783 (Version 3)
Quarter: 2023Q4

REPORT INFORMATION
  Report Type: Spontaneous
  Country: JP (occurrence: JP)
  Receive Date: 20231102
  Receipt Date: 20231218
  Transmission Date: 20240110
  Serious: Yes (Hospitalization, Other)
  Sender: FDA-Public Use
  Company Number: JP-ORPHANEU-2023007554

PATIENT

DRUGS (5)
  1. PASIREOTIDE [Suspect]
     Active Substance: PASIREOTIDE
     Indication: Acromegaly
     Dosage: 40MG/4WEEKS
     Route: 030
     Dates: start: 202203
  2. OZEMPIC [Suspect]
     Active Substance: SEMAGLUTIDE
     Indication: Diabetes mellitus
  3. PEGVISOMANT [Concomitant]
     Active Substance: PEGVISOMANT
     Indication: Acromegaly
     Dosage: UNK
  4. CABERGOLINE [Concomitant]
     Active Substance: CABERGOLINE
     Indication: Acromegaly
     Dosage: UNK
  5. DAPAGLIFLOZIN [Concomitant]
     Active Substance: DAPAGLIFLOZIN
     Indication: Diabetes mellitus
     Dosage: UNK

REACTIONS (5)
  - Bile duct stone [Recovered/Resolved]
  - Hepatic function abnormal [Recovered/Resolved]
  - Diabetes mellitus [Recovering/Resolving]
  - Jaundice [Recovered/Resolved]
  - Cholelithiasis [Recovered/Resolved]

NARRATIVE: CASE EVENT DATE: 20220501
